FAERS Safety Report 5878210-6 (Version None)
Quarter: 2008Q3

REPORT INFORMATION
  Report Type: 
  Country: None (occurrence: None)
  Receive Date: 20080911
  Receipt Date: 20080909
  Transmission Date: 20090109
  Serious: Yes (Death)
  Sender: FDA-Public Use
  Company Number: PHHY2008DE12078

PATIENT
  Sex: Male

DRUGS (2)
  1. ZOMETA [Suspect]
     Indication: METASTASES TO BONE
     Dosage: 4 MG EVERY 4 WEEKS
     Route: 042
     Dates: start: 20011114, end: 20050413
  2. CALCIMAGON-D3 [Concomitant]
     Dosage: UNK
     Dates: start: 20031208

REACTIONS (1)
  - PROSTATE CANCER [None]
